FAERS Safety Report 9973497 (Version 2)
Quarter: 2014Q1

REPORT INFORMATION
  Report Type: Spontaneous
  Country: FR (occurrence: FR)
  Receive Date: 20140306
  Receipt Date: 20140317
  Transmission Date: 20141002
  Serious: Yes (Hospitalization)
  Sender: FDA-Public Use
  Company Number: FR-PFIZER INC-2014059532

PATIENT
  Age: 74 Year
  Sex: Male

DRUGS (10)
  1. ADRIBLASTINE [Suspect]
     Indication: THYROID CANCER
     Dosage: 59 MG, DAILY ON DAY 2
     Route: 042
     Dates: start: 20130627, end: 20130905
  2. ADRIBLASTINE [Suspect]
     Indication: TRANSITIONAL CELL CARCINOMA
  3. METHOTREXATE [Suspect]
     Indication: THYROID CANCER
     Dosage: 59 MG, DAILY ON DAY 1
     Dates: start: 20130626, end: 20130904
  4. METHOTREXATE [Suspect]
     Indication: TRANSITIONAL CELL CARCINOMA
  5. CISPLATIN [Suspect]
     Indication: THYROID CANCER
     Dosage: 69 MG, DAILY ON DAY 1 AND DAY 2
     Route: 042
     Dates: start: 20130626, end: 20130905
  6. CISPLATIN [Suspect]
     Indication: TRANSITIONAL CELL CARCINOMA
  7. VELBE [Suspect]
     Indication: THYROID CANCER
     Dosage: 6 MG, DAILY ON DAY 2
     Route: 042
     Dates: start: 20130627, end: 20130905
  8. VELBE [Suspect]
     Indication: TRANSITIONAL CELL CARCINOMA
  9. PRAVADUAL [Concomitant]
     Dosage: 40 MG, 1X/DAY
     Route: 048
  10. LEVOTHYROX [Concomitant]
     Dosage: 200 UG, 1X/DAY
     Route: 048

REACTIONS (1)
  - Renal failure [Not Recovered/Not Resolved]
